FAERS Safety Report 8547765-5 (Version None)
Quarter: 2012Q3

REPORT INFORMATION
  Report Type: 
  Country: None (occurrence: None)
  Receive Date: 20120727
  Receipt Date: 20111222
  Transmission Date: 20120928
  Serious: Yes (Other)
  Sender: FDA-Public Use
  Company Number: US-ASTRAZENECA-2011SE78086

PATIENT
  Age: 52 Year
  Sex: Male

DRUGS (5)
  1. CYMBALTA [Concomitant]
  2. SEROQUEL XR [Suspect]
     Indication: SLEEP DISORDER
     Dosage: TOTAL DAILY DOSAGE 300 MG 400 MG
     Route: 048
  3. SEROQUEL XR [Suspect]
     Indication: DEPRESSION
     Dosage: TOTAL DAILY DOSAGE 300 MG 400 MG
     Route: 048
  4. ABILIFY [Concomitant]
  5. ZYPREXA [Concomitant]

REACTIONS (4)
  - SUICIDAL IDEATION [None]
  - OFF LABEL USE [None]
  - THINKING ABNORMAL [None]
  - AMNESIA [None]
